FAERS Safety Report 9629513 (Version 1)
Quarter: 2013Q4

REPORT INFORMATION
  Report Type: Spontaneous
  Country: US (occurrence: US)
  Receive Date: 20131017
  Receipt Date: 20131017
  Transmission Date: 20140711
  Serious: Yes (Other)
  Sender: FDA-Public Use
  Company Number: US-SA-2013SA102413

PATIENT
  Age: 55 Year
  Sex: 0

DRUGS (4)
  1. FLUDARA [Suspect]
     Indication: PROSTATE CANCER
     Route: 065
     Dates: start: 20130104
  2. CYTOXAN [Suspect]
     Indication: PROSTATE CANCER
     Route: 065
     Dates: start: 20130104
  3. RITUXAN [Suspect]
     Indication: PROSTATE CANCER
     Route: 065
     Dates: start: 20130104
  4. DEGARELIX ACETATE [Concomitant]
     Route: 065

REACTIONS (1)
  - Prostate cancer stage IV [Unknown]
